FAERS Safety Report 21822851 (Version 2)
Quarter: 2023Q1

REPORT INFORMATION
  Report Type: Spontaneous
  Country: ES (occurrence: ES)
  Receive Date: 20230105
  Receipt Date: 20230220
  Transmission Date: 20230417
  Serious: Yes (Hospitalization)
  Sender: FDA-Public Use
  Company Number: ES-TEVA-2022-ES-2842182

PATIENT
  Age: 76 Year
  Sex: Male

DRUGS (3)
  1. VENLAFAXINE [Suspect]
     Active Substance: VENLAFAXINE HYDROCHLORIDE
     Indication: Delusional disorder, unspecified type
     Dosage: 300 MILLIGRAM DAILY;
     Route: 065
  2. VALPROIC ACID [Suspect]
     Active Substance: VALPROIC ACID
     Indication: Delusional disorder, unspecified type
     Dosage: 100 MILLIGRAM DAILY;
     Route: 065
  3. HALOPERIDOL [Suspect]
     Active Substance: HALOPERIDOL
     Indication: Delusional disorder, unspecified type
     Dosage: 6 MILLIGRAM DAILY;
     Route: 065

REACTIONS (2)
  - Multiple-drug resistance [Unknown]
  - Atrial fibrillation [Unknown]
